FAERS Safety Report 8406742-5 (Version None)
Quarter: 2012Q2

REPORT INFORMATION
  Report Type: 
  Country: None (occurrence: None)
  Receive Date: 20120604
  Receipt Date: 20120524
  Transmission Date: 20120825
  Serious: Yes (Hospitalization, Other)
  Sender: FDA-Public Use
  Company Number: FR-ELI_LILLY_AND_COMPANY-FR201205008401

PATIENT
  Sex: Female

DRUGS (6)
  1. METFORMIN HCL [Concomitant]
  2. VALSARTAN  AND HYDROCHLOROTHIAZIDE [Concomitant]
  3. FENOFIBRATE [Concomitant]
  4. GEMZAR [Suspect]
     Indication: LUNG ADENOCARCINOMA
     Dosage: 1950 MG, UNK
     Route: 042
     Dates: end: 20120224
  5. NICARDIPINE HYDROCHLORIDE [Concomitant]
  6. DESLORATADINE [Concomitant]

REACTIONS (2)
  - HAEMOLYTIC URAEMIC SYNDROME [None]
  - SYNCOPE [None]
